FAERS Safety Report 18412633 (Version 1)
Quarter: 2020Q4

REPORT INFORMATION
  Report Type: Spontaneous
  Country: US (occurrence: US)
  Receive Date: 20201021
  Receipt Date: 20201021
  Transmission Date: 20210114
  Serious: Yes (Other)
  Sender: FDA-Public Use
  Company Number: US-TEVA-2020-US-1840691

PATIENT
  Sex: Female

DRUGS (5)
  1. HYDROCODONE AND ACETAMINOPHEN [Suspect]
     Active Substance: ACETAMINOPHEN\HYDROCODONE
     Route: 065
  2. TRAMADOL. [Suspect]
     Active Substance: TRAMADOL
     Route: 065
  3. HYDROMORPHONE ORAL SOLUTION [Suspect]
     Active Substance: HYDROMORPHONE
     Route: 048
  4. HYSINGLA ER [Suspect]
     Active Substance: HYDROCODONE BITARTRATE
     Route: 065
  5. HYDROCODONE IR TABLETS [Suspect]
     Active Substance: HYDROCODONE
     Route: 065

REACTIONS (1)
  - Drug dependence [Unknown]
